FAERS Safety Report 6296743-8 (Version None)
Quarter: 2009Q3

REPORT INFORMATION
  Report Type: 
  Country: None (occurrence: None)
  Receive Date: 20090804
  Receipt Date: 20090729
  Transmission Date: 20100115
  Serious: Yes (Hospitalization)
  Sender: FDA-Public Use
  Company Number: GB-TEVA-204340ISR

PATIENT
  Age: 52 Year
  Sex: Female

DRUGS (2)
  1. VENLAFAXINE HYDROCHLORIDE [Suspect]
  2. METHYLTHIONINIUM CHLORIDE [Suspect]
     Route: 042

REACTIONS (5)
  - APHASIA [None]
  - CONFUSIONAL STATE [None]
  - DISINHIBITION [None]
  - DRUG INTERACTION [None]
  - NYSTAGMUS [None]
